FAERS Safety Report 8948032 (Version 2)
Quarter: 2013Q2

REPORT INFORMATION
  Report Type: Spontaneous
  Country: US (occurrence: US)
  Receive Date: 20121204
  Receipt Date: 20130403
  Transmission Date: 20140414
  Serious: No
  Sender: FDA-Public Use
  Company Number: US-ASTRAZENECA-2012SE20040

PATIENT
  Age: 57 Year
  Sex: Female
  Weight: 108.9 kg

DRUGS (22)
  1. NEXIUM [Suspect]
     Indication: GASTROOESOPHAGEAL REFLUX DISEASE
     Route: 048
     Dates: start: 1997
  2. NEXIUM [Suspect]
     Indication: HIATUS HERNIA
     Route: 048
     Dates: start: 1997
  3. NEXIUM [Suspect]
     Indication: HELICOBACTER INFECTION
     Route: 048
     Dates: start: 1997
  4. NEXIUM [Suspect]
     Indication: VOMITING
     Route: 048
     Dates: start: 1997
  5. NEXIUM [Suspect]
     Indication: GASTROOESOPHAGEAL REFLUX DISEASE
     Route: 048
     Dates: start: 1997
  6. NEXIUM [Suspect]
     Indication: HIATUS HERNIA
     Route: 048
     Dates: start: 1997
  7. NEXIUM [Suspect]
     Indication: HELICOBACTER INFECTION
     Route: 048
     Dates: start: 1997
  8. NEXIUM [Suspect]
     Indication: VOMITING
     Route: 048
     Dates: start: 1997
  9. DIOVAN [Concomitant]
     Indication: HYPERTENSION
     Route: 048
  10. ZETIA [Concomitant]
     Indication: BLOOD CHOLESTEROL INCREASED
     Route: 048
  11. NORVASC [Concomitant]
     Indication: HYPERTENSION
     Route: 048
  12. TRILIPIX [Concomitant]
     Route: 048
  13. TIZANIDINE [Concomitant]
     Indication: MUSCLE SPASMS
  14. HYDROCHLOROTHIAZIDE [Concomitant]
     Indication: HYPERTENSION
  15. REGLAN [Concomitant]
     Indication: HIATUS HERNIA
  16. CALCIUM [Concomitant]
  17. VITAMIN D [Concomitant]
  18. VENTOLIN [Concomitant]
     Dosage: 2 PUFFS, QID
  19. OXYCODONE [Concomitant]
     Indication: INTERVERTEBRAL DISC DEGENERATION
  20. OXYCODONE [Concomitant]
     Indication: OSTEOARTHRITIS
  21. PROBIOTICS OTC [Concomitant]
  22. OXYGEN [Concomitant]

REACTIONS (12)
  - Gastrooesophageal reflux disease [Unknown]
  - Osteoporosis [Unknown]
  - Hernia [Unknown]
  - Aphagia [Unknown]
  - Dysphagia [Unknown]
  - Choking [Unknown]
  - Diverticulitis [Unknown]
  - Thyroid mass [Unknown]
  - Malaise [Unknown]
  - Vomiting [Unknown]
  - Intentional drug misuse [Unknown]
  - Off label use [Unknown]
